FAERS Safety Report 23108021 (Version 1)
Quarter: 2023Q4

REPORT INFORMATION
  Report Type: Other
  Country: ZA (occurrence: None)
  Receive Date: 20231026
  Receipt Date: 20231026
  Transmission Date: 20240110
  Serious: Yes (Other)
  Sender: FDA-Public Use
  Company Number: ZA-ROCHE-3441413

PATIENT
  Sex: Female

DRUGS (1)
  1. OCREVUS [Suspect]
     Active Substance: OCRELIZUMAB
     Indication: Multiple sclerosis
     Dosage: THEN 600 MG IN EVERY 6 MONTHS
     Route: 041
     Dates: start: 20221123

REACTIONS (5)
  - Mucosal hypertrophy [Unknown]
  - Multiple sclerosis [Unknown]
  - Sinusitis [Unknown]
  - Demyelination [Unknown]
  - Magnetic resonance imaging spinal abnormal [Unknown]
